FAERS Safety Report 16027014 (Version 1)
Quarter: 2019Q1

REPORT INFORMATION
  Report Type: Spontaneous
  Country: US (occurrence: US)
  Receive Date: 20190303
  Receipt Date: 20190303
  Transmission Date: 20190418
  Serious: No
  Sender: FDA-Public Use
  Company Number: US-IMPAX LABORATORIES, LLC-2018-IPXL-00453

PATIENT
  Sex: Male

DRUGS (25)
  1. MIRAPEX [Suspect]
     Active Substance: PRAMIPEXOLE DIHYDROCHLORIDE
     Dosage: 0.25MG 0.5 TAB (09AM, 08PM), 1 TAB (11AM, 03PM, 05PM)
     Route: 048
     Dates: start: 20180321
  2. AZILECT [Suspect]
     Active Substance: RASAGILINE MESYLATE
     Dosage: 1 MG, ONCE DAILY (03:PM)
     Route: 065
     Dates: start: 20180302, end: 201803
  3. SEROQUEL [Concomitant]
     Active Substance: QUETIAPINE FUMARATE
     Indication: SEDATION
     Dosage: 0.5 TAB OF 25 MG (09:AM, 08:PM)
     Route: 048
     Dates: start: 20171107, end: 20171119
  4. SEROQUEL [Concomitant]
     Active Substance: QUETIAPINE FUMARATE
     Dosage: 12.5 MG (09AM), 25 MG AT NIGHT.
     Route: 048
     Dates: start: 20180128
  5. AZILECT [Suspect]
     Active Substance: RASAGILINE MESYLATE
     Indication: PRODUCT USED FOR UNKNOWN INDICATION
     Dosage: 1 MG, 1 /DAY (11AM)
     Route: 065
     Dates: start: 20171225, end: 2017
  6. GLYCOPYRROLATE. [Concomitant]
     Active Substance: GLYCOPYRROLATE
     Dosage: 1 TAB (09:AM) 0.5 TAB (03:PM), TWO TIMES DAILY
     Route: 048
     Dates: start: 20171217, end: 201712
  7. MIRAPEX [Suspect]
     Active Substance: PRAMIPEXOLE DIHYDROCHLORIDE
     Dosage: 0.5 TAB OF 0.25 MG (10AM, 04PM)
     Route: 048
     Dates: start: 20171212, end: 20171216
  8. GLYCOPYRROLATE. [Concomitant]
     Active Substance: GLYCOPYRROLATE
     Dosage: 0.5 DF, 2 /DAY (REDUCED BY 33%) (09AM, 03PM)
     Route: 048
     Dates: start: 20171225
  9. MIRAPEX [Suspect]
     Active Substance: PRAMIPEXOLE DIHYDROCHLORIDE
     Dosage: 0.5 TAB, 0.25 MG(09:AM, 11:AM, 03:PM, 05PM)
     Route: 048
     Dates: start: 20171217, end: 20171224
  10. MIRAPEX [Suspect]
     Active Substance: PRAMIPEXOLE DIHYDROCHLORIDE
     Dosage: 0.25 MG(09:AM, 1:PM, 05PM)AND HALF TAB OF 0.25 MG(08:PM)
     Route: 048
     Dates: start: 20180105, end: 20180127
  11. RYTARY [Suspect]
     Active Substance: CARBIDOPA\LEVODOPA
     Indication: PARKINSON^S DISEASE
     Dosage: 23.75/95MG, 4 CAPSULES (07AM,1PM, 07PM), THREE TIMES DAILY
     Route: 048
     Dates: start: 20171212, end: 20180104
  12. RYTARY [Suspect]
     Active Substance: CARBIDOPA\LEVODOPA
     Dosage: 23.75/95MG, 4 CAPSULES (07AM,1PM, 07PM), THREE TIMES DAILY
     Route: 048
     Dates: start: 20180128
  13. SEROQUEL [Concomitant]
     Active Substance: QUETIAPINE FUMARATE
     Dosage: 0.5 TAB OF 0.25 MG ADDED
     Route: 048
     Dates: start: 20171120, end: 201711
  14. MIRAPEX [Suspect]
     Active Substance: PRAMIPEXOLE DIHYDROCHLORIDE
     Dosage: 1 TABLET, 0.25 MG, FOUR TIMES DAILY(09:AM, 11AM, 03PM, 05PM)
     Route: 048
     Dates: start: 20171225, end: 20180104
  15. GLYCOPYRROLATE. [Concomitant]
     Active Substance: GLYCOPYRROLATE
     Dosage: 0.5 TABLET (09:AM, 05PM)
     Route: 048
     Dates: start: 20180105
  16. FAMOTIDINE. [Concomitant]
     Active Substance: FAMOTIDINE
     Indication: GASTROOESOPHAGEAL REFLUX DISEASE
     Dosage: 1 DF, 1 /DAY (08:PM)
     Route: 048
     Dates: start: 20171107
  17. STALEVO [Suspect]
     Active Substance: CARBIDOPA\ENTACAPONE\LEVODOPA
     Indication: PARKINSON^S DISEASE
     Dosage: 25/100/200MG 1 TABLET 4 TIMES DAILY AT 7AM, 11AM, 3 PM, AND 7 PM
     Route: 065
     Dates: start: 20180105, end: 201801
  18. MIRAPEX [Suspect]
     Active Substance: PRAMIPEXOLE DIHYDROCHLORIDE
     Dosage: 0.25 MG HALF TAB (09:AM, 1:PM, 05:PM, 08:PM)
     Route: 048
     Dates: start: 20171107, end: 20171211
  19. AZILECT [Suspect]
     Active Substance: RASAGILINE MESYLATE
     Dosage: 1 MG, 1 /DAY (11AM)
     Route: 065
     Dates: start: 20180321
  20. SEROQUEL [Concomitant]
     Active Substance: QUETIAPINE FUMARATE
     Dosage: 0.5 TAB OF 25 MG (10:AM, 08:PM)
     Route: 048
     Dates: start: 20171212, end: 201712
  21. SEROQUEL [Concomitant]
     Active Substance: QUETIAPINE FUMARATE
     Dosage: 0.5 TAB FO 25 MG (09:AM, 08:PM)
     Route: 048
     Dates: start: 20171217, end: 201801
  22. GLYCOPYRROLATE. [Concomitant]
     Active Substance: GLYCOPYRROLATE
     Indication: SALIVARY HYPERSECRETION
     Dosage: 0.5 TAB (09:AM, 05:PM)
     Route: 048
     Dates: start: 20171107, end: 2017
  23. GLYCOPYRROLATE. [Concomitant]
     Active Substance: GLYCOPYRROLATE
     Dosage: 1 TAB (10:AM) 0.5 TAB (04PM), TWO TIMES DAILY
     Route: 048
     Dates: start: 20171212, end: 201712
  24. MIRAPEX [Suspect]
     Active Substance: PRAMIPEXOLE DIHYDROCHLORIDE
     Indication: PRODUCT USED FOR UNKNOWN INDICATION
     Dosage: 0.25 MG, FOUR TIMES DAILY
     Route: 048
  25. MIRAPEX [Suspect]
     Active Substance: PRAMIPEXOLE DIHYDROCHLORIDE
     Dosage: 0.25 MG TABLET (09AM, 11AM, 03PM)AND 0.5 TABLET (05:PM AND 8PM)
     Route: 048
     Dates: start: 20180128, end: 20180320

REACTIONS (12)
  - Dehydration [Unknown]
  - Aggression [Recovering/Resolving]
  - Dementia [Unknown]
  - Dysphagia [Unknown]
  - Drug effect incomplete [Unknown]
  - Immobile [Recovering/Resolving]
  - Speech disorder [Recovering/Resolving]
  - Chromaturia [Unknown]
  - Hallucination [Unknown]
  - Catatonia [Unknown]
  - Enuresis [Unknown]
  - Anal incontinence [Unknown]

NARRATIVE: CASE EVENT DATE: 2017
